FAERS Safety Report 6215735-8 (Version None)
Quarter: 2009Q2

REPORT INFORMATION
  Report Type: 
  Country: None (occurrence: None)
  Receive Date: 20090603
  Receipt Date: 20090526
  Transmission Date: 20091009
  Serious: Yes (Life-Threatening)
  Sender: FDA-Public Use
  Company Number: SPV1-2009-01048

PATIENT
  Age: 75 Year
  Sex: Female

DRUGS (7)
  1. ANAGRELIDE HCL [Suspect]
     Indication: ESSENTIAL THROMBOCYTHAEMIA
     Dosage: DF, ORAL
     Route: 048
     Dates: start: 19990401, end: 20030601
  2. HYDREA [Suspect]
     Indication: ESSENTIAL THROMBOCYTHAEMIA
     Dosage: DF, ORAL
     Route: 048
     Dates: start: 19950601, end: 19991101
  3. VERCYTE [Suspect]
     Indication: ESSENTIAL THROMBOCYTHAEMIA
     Dosage: DF, ORAL
     Route: 048
     Dates: start: 19991201, end: 20060801
  4. CARBOPLATIN [Suspect]
     Indication: BREAST CANCER
     Dosage: DF, INTRAVENOUS
     Route: 042
     Dates: start: 20050901, end: 20060101
  5. ARIMIDEX [Suspect]
     Indication: BREAST CANCER
     Dosage: DF, ORAL
     Route: 048
     Dates: start: 20060414, end: 20060901
  6. TAXOL [Suspect]
     Indication: BREAST CANCER
     Dosage: DF, INTRAVENOUS
     Route: 042
     Dates: start: 20050901, end: 20060101
  7. HERCEPTIN [Suspect]
     Indication: BREAST CANCER
     Dosage: DF, INTRAVENOUS
     Route: 042
     Dates: start: 20050901, end: 20060101

REACTIONS (3)
  - ACUTE MYELOID LEUKAEMIA [None]
  - BREAST CANCER FEMALE [None]
  - LUNG INFECTION [None]
